FAERS Safety Report 14529450 (Version 1)
Quarter: 2018Q1

REPORT INFORMATION
  Report Type: Spontaneous
  Country: US (occurrence: US)
  Receive Date: 20180214
  Receipt Date: 20180214
  Transmission Date: 20180509
  Serious: No
  Sender: FDA-Public Use
  Company Number: US-ASTRAZENECA-2018SE15744

PATIENT
  Sex: Female

DRUGS (3)
  1. SEROQUEL XR [Suspect]
     Active Substance: QUETIAPINE FUMARATE
     Route: 048
  2. SEROQUEL XR [Suspect]
     Active Substance: QUETIAPINE FUMARATE
     Dosage: QUETIAPINE FUMARATE XR
     Route: 048
  3. SEROQUEL XR [Suspect]
     Active Substance: QUETIAPINE FUMARATE
     Dosage: QUETIAPINE FUMARATE
     Route: 048

REACTIONS (17)
  - Skin irritation [Unknown]
  - Psychomotor hyperactivity [Unknown]
  - Eye irritation [Unknown]
  - Nasal discomfort [Unknown]
  - Genital burning sensation [Unknown]
  - Chills [Unknown]
  - Haemoptysis [Unknown]
  - Malaise [Unknown]
  - Anger [Unknown]
  - Piloerection [Unknown]
  - Poor quality sleep [Unknown]
  - Pneumonia [Unknown]
  - Pruritus [Unknown]
  - Nasopharyngitis [Unknown]
  - Loss of consciousness [Unknown]
  - Agitation [Unknown]
  - Dry mouth [Unknown]
